FAERS Safety Report 7630355-6 (Version None)
Quarter: 2011Q3

REPORT INFORMATION
  Report Type: 
  Country: None (occurrence: None)
  Receive Date: 20110722
  Receipt Date: 20110701
  Transmission Date: 20111222
  Serious: Yes (Death)
  Sender: FDA-Public Use
  Company Number: US-GLAXOSMITHKLINE-A0748458A

PATIENT
  Age: 62 Year
  Sex: Male
  Weight: 104.5 kg

DRUGS (13)
  1. PLAVIX [Concomitant]
  2. HYDROCHLOROTHIAZIDE [Concomitant]
  3. NIFEDIPINE [Concomitant]
  4. DIOVAN [Concomitant]
  5. AVANDIA [Suspect]
     Indication: TYPE 2 DIABETES MELLITUS
     Dosage: 4MG TWICE PER DAY
     Route: 048
     Dates: start: 19990101, end: 20051207
  6. FOLIC ACID [Concomitant]
  7. ADVICOR [Concomitant]
  8. ISOSORBIDE DINITRATE [Concomitant]
  9. ALTACE [Concomitant]
  10. GLYBURIDE [Concomitant]
  11. ATENOLOL [Concomitant]
  12. GLUCOPHAGE [Concomitant]
  13. CLONIDINE [Concomitant]

REACTIONS (3)
  - CARDIAC DISORDER [None]
  - DEATH [None]
  - MYOCARDIAL INFARCTION [None]
